FAERS Safety Report 8224984-9 (Version None)
Quarter: 2012Q1

REPORT INFORMATION
  Report Type: 
  Country: None (occurrence: None)
  Receive Date: 20120321
  Receipt Date: 20120314
  Transmission Date: 20120608
  Serious: Yes (Hospitalization, Other)
  Sender: FDA-Public Use
  Company Number: US-BAYER-2012-002514

PATIENT
  Age: 69 Year
  Sex: Female

DRUGS (3)
  1. NEXAVAR [Suspect]
     Indication: THYROID CANCER
     Dosage: 400 MG, BID
     Route: 048
     Dates: start: 20111103
  2. NEXAVAR [Suspect]
     Dosage: 400 MG, BID
     Route: 048
     Dates: start: 20111103
  3. NEXAVAR [Suspect]
     Dosage: 400 MG, BID
     Route: 048
     Dates: start: 20111103

REACTIONS (7)
  - PAIN [None]
  - HEADACHE [None]
  - DIZZINESS [None]
  - HYPERTENSION [None]
  - UPPER LIMB FRACTURE [None]
  - HOSPITALISATION [None]
  - NAUSEA [None]
